FAERS Safety Report 6249588-9 (Version None)
Quarter: 2009Q2

REPORT INFORMATION
  Report Type: 
  Country: None (occurrence: None)
  Receive Date: 20090629
  Receipt Date: 20090618
  Transmission Date: 20091009
  Serious: Yes (Other)
  Sender: FDA-Public Use
  Company Number: NL-ASTRAZENECA-2009SE02978

PATIENT
  Age: 41 Year
  Sex: Female
  Weight: 86 kg

DRUGS (3)
  1. RHINOCORT [Suspect]
     Indication: SEASONAL ALLERGY
     Route: 045
  2. VERAPAMIL [Concomitant]
     Route: 048
  3. DICLOFENAC [Concomitant]
     Route: 065

REACTIONS (2)
  - EPISTAXIS [None]
  - SINUSITIS [None]
